FAERS Safety Report 8477563-2 (Version None)
Quarter: 2012Q2

REPORT INFORMATION
  Report Type: 
  Country: None (occurrence: None)
  Receive Date: 20120626
  Receipt Date: 20120626
  Transmission Date: 20120825
  Serious: Yes (Life-Threatening)
  Sender: FDA-Public Use
  Company Number: None

PATIENT
  Sex: Female

DRUGS (3)
  1. LEXAPRO [Concomitant]
  2. SYNTHROID [Concomitant]
  3. ZESTRIL [Suspect]
     Indication: HYPERTENSION
     Dosage: 10 MG -1/2 TABLET- ONCE DAILY PO
     Route: 048
     Dates: start: 20111215, end: 20120417

REACTIONS (1)
  - ANGIOEDEMA [None]
